FAERS Safety Report 12589453 (Version 1)
Quarter: 2016Q3

REPORT INFORMATION
  Report Type: Spontaneous
  Country: CA (occurrence: CA)
  Receive Date: 20160725
  Receipt Date: 20160725
  Transmission Date: 20161109
  Serious: Yes (Other)
  Sender: FDA-Public Use
  Company Number: CA-JNJFOC-20160716663

PATIENT
  Age: 24 Year
  Sex: Female
  Weight: 45.36 kg

DRUGS (1)
  1. ORTHO EVRA [Suspect]
     Active Substance: ETHINYL ESTRADIOL\NORELGESTROMIN
     Indication: CHEMICAL CONTRACEPTION
     Route: 062

REACTIONS (3)
  - Petechiae [Recovered/Resolved]
  - Skin irritation [Recovered/Resolved]
  - Dermatitis [Recovered/Resolved]
